FAERS Safety Report 20906728 (Version 2)
Quarter: 2022Q2

REPORT INFORMATION
  Report Type: Spontaneous
  Country: TW (occurrence: TW)
  Receive Date: 20220602
  Receipt Date: 20220617
  Transmission Date: 20220721
  Serious: Yes (Life-Threatening, Hospitalization)
  Sender: FDA-Public Use
  Company Number: TW-GE HEALTHCARE-2022CSU003674

PATIENT
  Age: 64 Year
  Sex: Male
  Weight: 57 kg

DRUGS (13)
  1. OMNIPAQUE [Suspect]
     Active Substance: IOHEXOL
     Indication: Computerised tomogram head
     Dosage: 50 ML, SINGLE
     Route: 042
     Dates: start: 20220518, end: 20220518
  2. OMNIPAQUE [Suspect]
     Active Substance: IOHEXOL
     Indication: Computerised tomogram neck
  3. OMNIPAQUE [Suspect]
     Active Substance: IOHEXOL
     Indication: Lip and/or oral cavity cancer
  4. OMNIPAQUE [Suspect]
     Active Substance: IOHEXOL
     Indication: Fall
  5. CIPROFLOXACIN [Concomitant]
     Active Substance: CIPROFLOXACIN
  6. FENTANYL [Concomitant]
     Active Substance: FENTANYL
  7. LERCANIDIPINE HYDROCHLORIDE [Concomitant]
     Active Substance: LERCANIDIPINE HYDROCHLORIDE
  8. TOUJEO [Concomitant]
     Active Substance: INSULIN GLARGINE
  9. LINAGLIPTIN [Concomitant]
     Active Substance: LINAGLIPTIN
  10. CARVEDILOL [Concomitant]
     Active Substance: CARVEDILOL
  11. LEVOTHYROXINE [Concomitant]
     Active Substance: LEVOTHYROXINE
  12. CORTISONE [Concomitant]
     Active Substance: CORTISONE
  13. ESOMEPRAZOLE [Concomitant]
     Active Substance: ESOMEPRAZOLE

REACTIONS (1)
  - Anaphylactic shock [Recovering/Resolving]

NARRATIVE: CASE EVENT DATE: 20220518
